FAERS Safety Report 9478806 (Version 1)
Quarter: 2013Q3

REPORT INFORMATION
  Report Type: Report from Study
  Country: BR (occurrence: BR)
  Receive Date: 20130827
  Receipt Date: 20130827
  Transmission Date: 20140515
  Serious: Yes (Other)
  Sender: FDA-Public Use
  Company Number: BR-ABBOTT-13P-020-1136908-00

PATIENT
  Sex: Female
  Weight: 80 kg

DRUGS (1)
  1. HUMIRA [Suspect]
     Indication: RHEUMATOID ARTHRITIS
     Route: 058
     Dates: start: 20130204, end: 20130726

REACTIONS (3)
  - Appendix disorder [Unknown]
  - Visual impairment [Unknown]
  - Abdominal pain [Unknown]
